FAERS Safety Report 8868959 (Version 1)
Quarter: 2012Q4

REPORT INFORMATION
  Report Type: Spontaneous
  Country: ES (occurrence: None)
  Receive Date: 20121022
  Receipt Date: 20121022
  Transmission Date: 20130627
  Serious: Yes (Hospitalization)
  Sender: FDA-Public Use
  Company Number: 140394

PATIENT
  Age: 62 Year
  Sex: Female

DRUGS (2)
  1. TERBUTALINE SULFATE [Suspect]
     Indication: INFLUENZA A VIRUS INFECTION
  2. TERBUTALINE SULFATE [Suspect]
     Indication: H1N1 INFLUENZA

REACTIONS (10)
  - Disorientation [None]
  - Restlessness [None]
  - Psychomotor hyperactivity [None]
  - Abnormal behaviour [None]
  - Cognitive disorder [None]
  - Incoherent [None]
  - Delusion [None]
  - No therapeutic response [None]
  - Cerebral atrophy [None]
  - Flat affect [None]
